FAERS Safety Report 15609813 (Version 2)
Quarter: 2018Q4

REPORT INFORMATION
  Report Type: Spontaneous
  Country: US (occurrence: US)
  Receive Date: 20181113
  Receipt Date: 20181203
  Transmission Date: 20190205
  Serious: Yes (Life-Threatening, Hospitalization, Other)
  Sender: FDA-Public Use
  Company Number: US-LUPIN PHARMACEUTICALS INC.-2017-00827

PATIENT
  Age: 6 Decade
  Sex: Female

DRUGS (5)
  1. OXYCODONE [Suspect]
     Active Substance: OXYCODONE
     Dosage: 1620 MG, QD (EQUIVALENT TO MORPHINE DAILY DOSE (MEDD)
     Route: 065
     Dates: start: 2016
  2. OXYCODONE [Suspect]
     Active Substance: OXYCODONE
     Dosage: 1620 MG, QD (EQUIVALENT TO MORPHINE DAILY DOSE (MEDD)
     Route: 065
  3. CARISOPRODOL. [Concomitant]
     Active Substance: CARISOPRODOL
     Indication: PRODUCT USED FOR UNKNOWN INDICATION
     Dosage: UNK
     Route: 065
  4. LORAZEPAM. [Concomitant]
     Active Substance: LORAZEPAM
     Indication: PRODUCT USED FOR UNKNOWN INDICATION
     Dosage: 04 MG, QD
     Route: 065
  5. OXYCODONE [Suspect]
     Active Substance: OXYCODONE
     Indication: BACK PAIN
     Dosage: 15 MG, QID
     Route: 065

REACTIONS (5)
  - Respiratory failure [Unknown]
  - Weight decreased [Unknown]
  - Narcotic bowel syndrome [Recovering/Resolving]
  - Early satiety [Unknown]
  - Abdominal pain [Recovering/Resolving]
